FAERS Safety Report 24917109 (Version 1)
Quarter: 2025Q1

REPORT INFORMATION
  Report Type: Spontaneous
  Country: DE (occurrence: DE)
  Receive Date: 20250203
  Receipt Date: 20250203
  Transmission Date: 20250409
  Serious: Yes (Hospitalization)
  Sender: SANDOZ
  Company Number: DE-ROCHE-3579397

PATIENT
  Age: 78 Year
  Sex: Male
  Weight: 82.3 kg

DRUGS (19)
  1. CYCLOPHOSPHAMIDE [Suspect]
     Active Substance: CYCLOPHOSPHAMIDE
     Indication: Diffuse large B-cell lymphoma
     Dosage: ON 31-MAY-2024, HE RECEIVED MOST RECENT DOSE 1512 MG OF CYCLOPHOSPHAMIDE PRIOR TO AE/SAE.
     Route: 042
     Dates: start: 20240510
  2. DOXORUBICIN [Suspect]
     Active Substance: DOXORUBICIN
     Indication: Diffuse large B-cell lymphoma
     Dosage: ON 31-MAY-2024, HE RECEIVED MOST RECENT DOSE 101 MG OF  DOXORUBICIN PRIOR TO AE/SAE.
     Route: 042
     Dates: start: 20240511
  3. PREDNISOLONE [Suspect]
     Active Substance: PREDNISOLONE
     Indication: Diffuse large B-cell lymphoma
     Dosage: ON 04-JUN-2024, HE RECEIVED MOST RECENT DOSE 100 MG OF PREDNISOLONE PRIOR TO AE/SAE.
     Route: 048
     Dates: start: 20240510
  4. POLATUZUMAB VEDOTIN [Suspect]
     Active Substance: POLATUZUMAB VEDOTIN
     Indication: Diffuse large B-cell lymphoma
     Dosage: ON 01/JUN/2024, HE RECEIVED MOST RECENT DOSE 148 MG OF POLATUZUMAB VEDOTIN PRIOR TO AE/SAE.
     Route: 042
     Dates: start: 20240511
  5. POLATUZUMAB VEDOTIN [Suspect]
     Active Substance: POLATUZUMAB VEDOTIN
     Route: 042
  6. RITUXIMAB [Suspect]
     Active Substance: RITUXIMAB
     Indication: Diffuse large B-cell lymphoma
     Dosage: ON 31-MAY-2024, HE RECEIVED MOST RECENT DOSE 756 MG OF RITUXIMAB PRIOR TO AE/SAE.
     Route: 042
     Dates: start: 20240510
  7. RITUXIMAB [Suspect]
     Active Substance: RITUXIMAB
     Route: 042
  8. ACYCLOVIR [Concomitant]
     Active Substance: ACYCLOVIR
     Indication: Product used for unknown indication
     Route: 048
     Dates: start: 20240507, end: 20250106
  9. AZITHROMYCIN [Concomitant]
     Active Substance: AZITHROMYCIN
     Indication: Pneumonia
     Dosage: 500 MG, QD
     Route: 048
     Dates: start: 20240711, end: 20240712
  10. CEFUROXIME [Concomitant]
     Active Substance: CEFUROXIME
     Indication: Pneumonia
     Route: 042
     Dates: start: 20240711, end: 20240712
  11. CLEMASTINE [Concomitant]
     Active Substance: CLEMASTINE
     Indication: Product used for unknown indication
     Dosage: 2 MG, TIW
     Route: 042
     Dates: start: 20240510, end: 20241016
  12. SULFAMETHOXAZOLE\TRIMETHOPRIM [Concomitant]
     Active Substance: SULFAMETHOXAZOLE\TRIMETHOPRIM
     Indication: Product used for unknown indication
     Route: 048
     Dates: start: 20240507, end: 20250106
  13. DEXAMETHASONE [Concomitant]
     Active Substance: DEXAMETHASONE
     Indication: Product used for unknown indication
     Dosage: 20 MG, TIW
     Route: 042
     Dates: start: 20240510, end: 20240903
  14. FAMOTIDINE [Concomitant]
     Active Substance: FAMOTIDINE
     Indication: Product used for unknown indication
     Dosage: 40 MG, TIW
     Route: 048
     Dates: start: 20240510, end: 20241016
  15. FRAGMIN [Concomitant]
     Active Substance: DALTEPARIN SODIUM
     Indication: Product used for unknown indication
     Dosage: 0.2 ML, QD
     Route: 058
     Dates: start: 20240711
  16. ONDANSETRON [Concomitant]
     Active Substance: ONDANSETRON
     Indication: Pain
     Route: 048
     Dates: start: 20240507
  17. ACETAMINOPHEN [Concomitant]
     Active Substance: ACETAMINOPHEN
     Indication: Product used for unknown indication
     Dosage: 1000 MG, TIW
     Route: 048
     Dates: start: 20240510, end: 20241016
  18. PEGFILGRASTIM [Concomitant]
     Active Substance: PEGFILGRASTIM
     Indication: Product used for unknown indication
     Dosage: 6 MG, TIW
     Route: 058
     Dates: start: 20240510, end: 20241016
  19. TAZOBACTAM [Concomitant]
     Active Substance: TAZOBACTAM
     Indication: Pneumonia
     Route: 042
     Dates: start: 20240710, end: 20240710

REACTIONS (1)
  - Urinary tract infection [Recovered/Resolved]

NARRATIVE: CASE EVENT DATE: 20240607
